FAERS Safety Report 4729426-3 (Version None)
Quarter: 2005Q3

REPORT INFORMATION
  Report Type: 
  Country: None (occurrence: None)
  Receive Date: 20050728
  Receipt Date: 20050714
  Transmission Date: 20060218
  Serious: Yes (Other)
  Sender: FDA-Public Use
  Company Number: 2005103366

PATIENT
  Sex: Female
  Weight: 90.7194 kg

DRUGS (5)
  1. BEXTRA [Suspect]
     Indication: OSTEOARTHRITIS
     Dosage: 20 MG (20 MG, 1 IN 1 D), ORAL
     Route: 048
     Dates: start: 20031101, end: 20050201
  2. NORVASC [Concomitant]
  3. SYNTHROID [Concomitant]
  4. FLOVENT [Concomitant]
  5. ACETYLSALICYLIC ACID SRT [Concomitant]

REACTIONS (9)
  - CONDITION AGGRAVATED [None]
  - DERMATITIS [None]
  - DRUG EFFECT DECREASED [None]
  - ERYTHEMA [None]
  - FACIAL PAIN [None]
  - IMPAIRED HEALING [None]
  - RASH [None]
  - ROTATOR CUFF SYNDROME [None]
  - TENDERNESS [None]
